FAERS Safety Report 4280565-3 (Version None)
Quarter: 2004Q1

REPORT INFORMATION
  Report Type: 
  Country: None (occurrence: None)
  Receive Date: 20040127
  Receipt Date: 20040116
  Transmission Date: 20041129
  Serious: Yes (Death, Life-Threatening, Other)
  Sender: FDA-Public Use
  Company Number: 200410137EU

PATIENT
  Age: 76 Year
  Sex: Male

DRUGS (9)
  1. LANTUS [Suspect]
     Indication: DIABETES MELLITUS NON-INSULIN-DEPENDENT
     Dosage: 40 IU/DAY SC
     Route: 058
     Dates: start: 20000809
  2. GLICLAZIDE [Concomitant]
  3. SOTALOL HCL [Concomitant]
  4. PYRIDOXINE HYDROCHLORIDE, CYANOCOBALAMIN, RIBOFLAVIN, THIAMINE MONONIT [Concomitant]
  5. GUANFACINE HYDROCHLORIDE (ESTULIC) [Concomitant]
  6. REPAGLINIDE (NOVONORM) [Concomitant]
  7. DIOVAN [Concomitant]
  8. WARFARIN SODIUM [Concomitant]
  9. ACETYLSALICYLIC ACID (CARDIOASPIRIN) [Concomitant]

REACTIONS (1)
  - ACUTE MYOCARDIAL INFARCTION [None]
